FAERS Safety Report 13817250 (Version 1)
Quarter: 2017Q3

REPORT INFORMATION
  Report Type: Spontaneous
  Country: JP (occurrence: JP)
  Receive Date: 20170731
  Receipt Date: 20170731
  Transmission Date: 20171127
  Serious: Yes (Death)
  Sender: FDA-Public Use
  Company Number: JP-BAYER-2017-140594

PATIENT
  Age: 55 Year

DRUGS (1)
  1. STIVARGA [Suspect]
     Active Substance: REGORAFENIB
     Indication: COLON CANCER
     Dosage: 160MG, DAILY
     Route: 048

REACTIONS (3)
  - Proteinuria [None]
  - Death [Fatal]
  - Palmar-plantar erythrodysaesthesia syndrome [None]
